FAERS Safety Report 12317928 (Version 2)
Quarter: 2016Q2

REPORT INFORMATION
  Report Type: Spontaneous
  Country: US (occurrence: US)
  Receive Date: 20160429
  Receipt Date: 20160502
  Transmission Date: 20160815
  Serious: No
  Sender: FDA-Public Use
  Company Number: US-GLAXOSMITHKLINE-US2016048852

PATIENT
  Age: 57 Year
  Sex: Female

DRUGS (5)
  1. ZYRTEC [Concomitant]
     Active Substance: CETIRIZINE HYDROCHLORIDE
  2. LORAZEPAM. [Concomitant]
     Active Substance: LORAZEPAM
  3. ATOVAQUONE + PROGUANIL HYDROCHLORIDE TABLET [Suspect]
     Active Substance: ATOVAQUONE\PROGUANIL HYDROCHLORIDE
     Dosage: 5 DF, BID
     Route: 048
     Dates: start: 20160330
  4. FAMOTIDINE. [Concomitant]
     Active Substance: FAMOTIDINE
  5. CLIMARA [Concomitant]
     Active Substance: ESTRADIOL

REACTIONS (12)
  - Somnolence [Recovering/Resolving]
  - Gastroenteritis viral [Recovering/Resolving]
  - Feeling abnormal [Unknown]
  - Migraine [Recovering/Resolving]
  - Feeding disorder [Recovering/Resolving]
  - Dehydration [Recovering/Resolving]
  - Pain [Recovering/Resolving]
  - Headache [Recovering/Resolving]
  - Nausea [Recovering/Resolving]
  - Product quality issue [Unknown]
  - Photosensitivity reaction [Recovering/Resolving]
  - Dyspnoea [Recovering/Resolving]

NARRATIVE: CASE EVENT DATE: 201603
